FAERS Safety Report 21240166 (Version 1)
Quarter: 2022Q3

REPORT INFORMATION
  Report Type: Spontaneous
  Country: US (occurrence: None)
  Receive Date: 20220819
  Receipt Date: 20220819
  Transmission Date: 20221027
  Serious: No
  Sender: FDA-Public Use
  Company Number: None

PATIENT
  Sex: Female

DRUGS (1)
  1. NEXPLANON [Suspect]
     Active Substance: ETONOGESTREL
     Indication: Contraception
     Dosage: FREQUENCY : ONCE;?OTHER ROUTE : SUBDERMALLY;?
     Route: 050
     Dates: start: 202208

REACTIONS (2)
  - Product dose omission issue [None]
  - Device expulsion [None]
